FAERS Safety Report 7516150-7 (Version None)
Quarter: 2011Q2

REPORT INFORMATION
  Report Type: 
  Country: None (occurrence: None)
  Receive Date: 20110601
  Receipt Date: 20110512
  Transmission Date: 20111010
  Serious: No
  Sender: FDA-Public Use
  Company Number: US-B.I. PHARMACEUTICALS,INC./RIDGEFIELD-2011-BP-06187BP

PATIENT
  Age: 87 Year
  Sex: Male

DRUGS (9)
  1. PRAVACHOL [Concomitant]
     Indication: BLOOD CHOLESTEROL
     Dosage: 40 MG
  2. MEDICATION NOT FURTHER SPECIFIED [Concomitant]
     Indication: CARDIAC DISORDER
  3. AMLODIPINE [Concomitant]
     Dosage: 5 MG
  4. TRIAMTERENE AND HYDROCHLOROTHIAZIDE [Concomitant]
  5. LEVOTHYROXINE SODIUM [Concomitant]
     Dosage: 25 MCG
  6. PRADAXA [Suspect]
     Indication: ATRIAL FIBRILLATION
     Dosage: 300 MG
     Route: 048
     Dates: start: 20110201
  7. MEDICATION NOT FURTHER SPECIFIED [Concomitant]
  8. DIOVAN [Concomitant]
     Dosage: 320 MG
  9. ASPIRIN [Concomitant]
     Dosage: 80 MG

REACTIONS (5)
  - FATIGUE [None]
  - ASTHENIA [None]
  - LETHARGY [None]
  - DEPRESSION [None]
  - FEELING ABNORMAL [None]
